FAERS Safety Report 8806736 (Version 2)
Quarter: 2012Q4

REPORT INFORMATION
  Report Type: Spontaneous
  Country: None (occurrence: None)
  Receive Date: 20120919
  Receipt Date: 20121107
  Transmission Date: 20130627
  Serious: Yes (Other)
  Sender: FDA-Public Use
  Company Number: AUR-APL-2012-03960

PATIENT
  Age: 35 Year
  Sex: Female

DRUGS (3)
  1. CITALOPRAM (CITALOPRAM) [Suspect]
     Indication: ANXIETY
     Route: 048
     Dates: start: 201204
  2. CITALOPRAM (CITALOPRAM) [Suspect]
     Indication: ANXIETY
     Route: 048
     Dates: start: 201107, end: 201202
  3. CITALOPRAM (CITALOPRAM) [Suspect]
     Indication: ANXIETY
     Route: 048
     Dates: start: 2006

REACTIONS (4)
  - Suicidal ideation [None]
  - Menstruation irregular [None]
  - Weight increased [None]
  - Stress [None]
